FAERS Safety Report 7348502-2 (Version None)
Quarter: 2011Q1

REPORT INFORMATION
  Report Type: 
  Country: None (occurrence: None)
  Receive Date: 20110314
  Receipt Date: 20110303
  Transmission Date: 20110831
  Serious: Yes (Other)
  Sender: FDA-Public Use
  Company Number: US-ASTRAZENECA-2011SE12216

PATIENT
  Age: 60 Year
  Sex: Male

DRUGS (3)
  1. SEROQUEL [Concomitant]
     Route: 048
  2. NEXIUM [Suspect]
     Route: 048
  3. SEROQUEL [Concomitant]
     Route: 048

REACTIONS (2)
  - INFECTION [None]
  - KNEE ARTHROPLASTY [None]
